FAERS Safety Report 12766838 (Version 1)
Quarter: 2016Q3

REPORT INFORMATION
  Report Type: Spontaneous
  Country: JP (occurrence: JP)
  Receive Date: 20160921
  Receipt Date: 20160921
  Transmission Date: 20161109
  Serious: Yes (Hospitalization)
  Sender: FDA-Public Use
  Company Number: JP-NOVOPROD-510574

PATIENT
  Age: 51 Year
  Sex: Male

DRUGS (4)
  1. TRESIBA CHU FLEXTOUCH [Suspect]
     Active Substance: INSULIN DEGLUDEC
     Dosage: 600 U, SINGLE
     Route: 058
     Dates: start: 20160911
  2. HUMALOG [Suspect]
     Active Substance: INSULIN LISPRO
     Indication: TYPE 2 DIABETES MELLITUS
     Dosage: UNK
     Route: 058
  3. TRESIBA CHU FLEXTOUCH [Suspect]
     Active Substance: INSULIN DEGLUDEC
     Indication: TYPE 2 DIABETES MELLITUS
     Dosage: UNK
     Route: 058
  4. HUMALOG [Suspect]
     Active Substance: INSULIN LISPRO
     Dosage: 640 U, SINGLE
     Route: 058
     Dates: start: 20160911

REACTIONS (3)
  - Suicide attempt [Recovered/Resolved]
  - Intentional overdose [Unknown]
  - Hypoglycaemia [Recovered/Resolved]

NARRATIVE: CASE EVENT DATE: 20160911
